FAERS Safety Report 13468522 (Version 10)
Quarter: 2017Q2

REPORT INFORMATION
  Report Type: Spontaneous
  Country: FR (occurrence: FR)
  Receive Date: 20170421
  Receipt Date: 20170519
  Transmission Date: 20170830
  Serious: Yes (Hospitalization, Other)
  Sender: FDA-Public Use
  Company Number: FR-PFIZER INC-2017169741

PATIENT
  Age: 92 Year
  Sex: Female

DRUGS (9)
  1. ELIQUIS [Suspect]
     Active Substance: APIXABAN
     Indication: CEREBROVASCULAR ACCIDENT PROPHYLAXIS
     Dosage: 2.5 MG, 2X/DAY
     Route: 048
     Dates: start: 2014
  2. LERCAN [Concomitant]
     Active Substance: LERCANIDIPINE
  3. FORLAX [Concomitant]
     Active Substance: POLYETHYLENE GLYCOL 4000
  4. SPASFON-LYOC [Concomitant]
     Active Substance: PHLOROGLUCINOL
  5. MOPRAL [Concomitant]
     Active Substance: OMEPRAZOLE SODIUM
  6. CORDARONE [Suspect]
     Active Substance: AMIODARONE HYDROCHLORIDE
     Indication: ATRIAL FIBRILLATION
     Dosage: 200 MG, 1X/DAY
     Route: 048
     Dates: start: 2014
  7. CORDARONE [Suspect]
     Active Substance: AMIODARONE HYDROCHLORIDE
     Indication: ARRHYTHMIA
  8. PARACETAMOL [Concomitant]
     Active Substance: ACETAMINOPHEN
  9. RASILEZ [Concomitant]
     Active Substance: ALISKIREN

REACTIONS (8)
  - Hypothyroidism [Unknown]
  - Chest injury [Unknown]
  - Fall [Unknown]
  - Dysarthria [Unknown]
  - Blood pressure systolic decreased [Unknown]
  - Orthostatic hypotension [Unknown]
  - Rib fracture [Unknown]
  - Face injury [Unknown]

NARRATIVE: CASE EVENT DATE: 201703
